FAERS Safety Report 5062566-0 (Version None)
Quarter: 2006Q3

REPORT INFORMATION
  Report Type: 
  Country: None (occurrence: None)
  Receive Date: 20060721
  Receipt Date: 20060717
  Transmission Date: 20061208
  Serious: Yes (Death, Life-Threatening, Hospitalization)
  Sender: FDA-Public Use
  Company Number: 2006MP000553

PATIENT
  Age: 35 Year
  Sex: Female

DRUGS (3)
  1. GLIADEL [Suspect]
     Indication: GLIOBLASTOMA MULTIFORME
     Dosage: 61.6 MG;X1
     Dates: start: 20060403, end: 20060403
  2. DEXAMETHASONE TAB [Concomitant]
  3. PHENYTOIN [Concomitant]

REACTIONS (16)
  - ASTHENIA [None]
  - BRAIN DEATH [None]
  - BRAIN HERNIATION [None]
  - COMPUTERISED TOMOGRAM ABNORMAL [None]
  - CONFUSIONAL STATE [None]
  - HAEMORRHAGE [None]
  - LOSS OF CONSCIOUSNESS [None]
  - MYDRIASIS [None]
  - PETIT MAL EPILEPSY [None]
  - PHOTOPHOBIA [None]
  - POST PROCEDURAL COMPLICATION [None]
  - PUPIL FIXED [None]
  - PYREXIA [None]
  - STATUS EPILEPTICUS [None]
  - SUBARACHNOID HAEMORRHAGE [None]
  - VASOSPASM [None]
